FAERS Safety Report 6052412-0 (Version None)
Quarter: 2009Q1

REPORT INFORMATION
  Report Type: 
  Country: None (occurrence: None)
  Receive Date: 20090121
  Receipt Date: 20090108
  Transmission Date: 20090719
  Serious: Yes (Hospitalization)
  Sender: FDA-Public Use
  Company Number: 1-17241101

PATIENT
  Age: 79 Year
  Sex: Female
  Weight: 70.7611 kg

DRUGS (7)
  1. FELODIPINE ER TABLET 10 MG [Suspect]
     Indication: HYPERTENSION
     Dosage: 10 MG, ONCE, ORAL
     Route: 048
     Dates: start: 20081211, end: 20081211
  2. LIPITOR [Concomitant]
  3. ASPIRIN [Concomitant]
  4. GLUCOSAMINE AND CHONDROITIN [Concomitant]
  5. CALCIUM SUPPLEMENTS [Concomitant]
  6. MULTI-VITAMIN [Concomitant]
  7. NITROGLYCERIN SPRAY [Concomitant]

REACTIONS (11)
  - BLOOD PRESSURE DECREASED [None]
  - DIZZINESS [None]
  - DYSARTHRIA [None]
  - ERYTHEMA [None]
  - FEELING ABNORMAL [None]
  - FEELING HOT [None]
  - GAIT DISTURBANCE [None]
  - HEMIPARESIS [None]
  - OEDEMA PERIPHERAL [None]
  - SPEECH DISORDER [None]
  - TRANSIENT ISCHAEMIC ATTACK [None]
